FAERS Safety Report 7427868-9 (Version None)
Quarter: 2011Q2

REPORT INFORMATION
  Report Type: 
  Country: None (occurrence: None)
  Receive Date: 20110421
  Receipt Date: 20110408
  Transmission Date: 20111010
  Serious: Yes (Hospitalization)
  Sender: FDA-Public Use
  Company Number: JP-ELI_LILLY_AND_COMPANY-JP201010006566

PATIENT
  Age: 73 Year
  Sex: Female

DRUGS (6)
  1. FORTEO [Suspect]
     Dosage: UNK, UNKNOWN
     Route: 058
     Dates: start: 20101019, end: 20110129
  2. PENTASA [Concomitant]
     Indication: CROHN'S DISEASE
     Dosage: UNK, UNKNOWN
     Route: 065
  3. VITAMIN B6 [Concomitant]
     Route: 048
  4. NEUROTROPIN [Concomitant]
     Route: 048
  5. PYRIDOXAL PHOSPHATE [Concomitant]
     Route: 048
  6. FORTEO [Suspect]
     Route: 058
     Dates: start: 20110205

REACTIONS (12)
  - INJECTION SITE HAEMATOMA [None]
  - DIARRHOEA [None]
  - DYSPHONIA [None]
  - ABDOMINAL PAIN [None]
  - SENSATION OF FOREIGN BODY [None]
  - HOSPITALISATION [None]
  - STOMATITIS [None]
  - BACK PAIN [None]
  - PALPITATIONS [None]
  - CHEILITIS [None]
  - RASH [None]
  - HYPOAESTHESIA [None]
